FAERS Safety Report 16344409 (Version 2)
Quarter: 2020Q3

REPORT INFORMATION
  Report Type: Spontaneous
  Country: US (occurrence: US)
  Receive Date: 20190522
  Receipt Date: 20200826
  Transmission Date: 20201102
  Serious: Yes (Death, Hospitalization, Other)
  Sender: FDA-Public Use
  Company Number: US-PFIZER INC-2019211953

PATIENT
  Age: 70 Year
  Sex: Male
  Weight: 88.45 kg

DRUGS (1)
  1. REVATIO [Suspect]
     Active Substance: SILDENAFIL CITRATE
     Indication: LUNG DISORDER
     Dosage: 20 MG, 3X/DAY
     Route: 048
     Dates: start: 2000

REACTIONS (4)
  - Body height decreased [Unknown]
  - Lung neoplasm malignant [Not Recovered/Not Resolved]
  - Colon cancer [Unknown]
  - Death [Fatal]

NARRATIVE: CASE EVENT DATE: 2007
